FAERS Safety Report 6496411-3 (Version None)
Quarter: 2009Q4

REPORT INFORMATION
  Report Type: 
  Country: None (occurrence: None)
  Receive Date: 20091214
  Receipt Date: 20090625
  Transmission Date: 20100525
  Serious: Yes (Death, Life-Threatening, Hospitalization)
  Sender: FDA-Public Use
  Company Number: CA-SANOFI-AVENTIS-D01200503265

PATIENT
  Age: 65 Year
  Sex: Female
  Weight: 81.6 kg

DRUGS (3)
  1. CLOPIDOGREL BISULFATE [Suspect]
     Indication: ATRIAL FIBRILLATION
     Dosage: UNIT DOSE: 75 MG
     Route: 048
     Dates: start: 20031030
  2. BLINDED THERAPY [Concomitant]
     Indication: ATRIAL FIBRILLATION
     Dosage: DOSE TEXT: 150 MG/DAY FOR 2 WEEKS FOLLOWING BY 300 MG/DAYUNIT DOSE: 150 MG
     Route: 048
     Dates: start: 20031030
  3. ASPIRIN [Concomitant]
     Indication: ATRIAL FIBRILLATION
     Route: 048
     Dates: start: 20031030

REACTIONS (2)
  - ENDOMETRIAL CANCER [None]
  - VAGINAL HAEMORRHAGE [None]
